FAERS Safety Report 8330909-8 (Version None)
Quarter: 2012Q2

REPORT INFORMATION
  Report Type: 
  Country: None (occurrence: None)
  Receive Date: 20120502
  Receipt Date: 20120425
  Transmission Date: 20120825
  Serious: Yes (Hospitalization, Other)
  Sender: FDA-Public Use
  Company Number: DE-PFIZER INC-2012079164

PATIENT
  Sex: Male
  Weight: 98 kg

DRUGS (17)
  1. CAPTOPRIL [Concomitant]
     Dosage: 50 MG, 2X/DAY
     Route: 048
     Dates: start: 20090101
  2. SOMATROPIN [Suspect]
     Dosage: 0.4 (UNIT NOT PROVIDED), 1X/DAY
     Dates: start: 20031202
  3. LEVOTHYROXINE [Concomitant]
     Indication: BLOOD THYROID STIMULATING HORMONE DECREASED
     Dosage: 100 UG DAILY
     Route: 048
     Dates: start: 19990701, end: 20050101
  4. CAPTOPRIL [Concomitant]
     Indication: ESSENTIAL HYPERTENSION
     Dosage: 75 MG DAILY
     Route: 048
     Dates: start: 19990914, end: 20030701
  5. SOMATROPIN [Suspect]
     Indication: HYPOPITUITARISM
     Dosage: 0.4 MG, 1X/DAY
     Dates: start: 19990824
  6. ADALAT [Concomitant]
     Dosage: 20 MG, DAILY
     Dates: start: 19990914
  7. SOMATROPIN [Suspect]
     Dosage: 0.3 (UNIT NOT PROVIDED), 1X/DAY
     Dates: start: 20010531
  8. SOMATROPIN [Suspect]
     Dosage: 0.3 (UNIT NOT PROVIDED), 1X/DAY
     Dates: start: 20041206
  9. LEVOTHYROXINE [Concomitant]
     Dosage: 150 UG DAILY
     Route: 048
     Dates: start: 20090201
  10. CAPTOPRIL [Concomitant]
     Dosage: 25 MG, 2X/DAY
     Route: 048
     Dates: start: 20030701, end: 20090101
  11. METOPROLOL TARTRATE AND HYDROCHLOROTHIAZIDE [Concomitant]
     Indication: ESSENTIAL HYPERTENSION
     Dosage: 95 MG, DAILY
     Dates: start: 20030701
  12. TESTOSTERONE [Concomitant]
     Indication: BLOOD FOLLICLE STIMULATING HORMONE DECREASED
     Dosage: 50 MG, DAILY
     Dates: start: 20030701, end: 20110319
  13. HYDROCORTISONE [Concomitant]
     Indication: BLOOD CORTICOTROPHIN DECREASED
     Dosage: 30 MG, DAILY
     Dates: start: 19990701
  14. DESMOPRESSIN [Concomitant]
     Indication: BLOOD ANTIDIURETIC HORMONE DECREASED
     Dosage: 1 IU, DAILY
     Dates: start: 19990701
  15. SOMATROPIN [Suspect]
     Dosage: 0.33 (UNIT NOT PROVIDED), 1X/DAY
     Dates: start: 20000329
  16. SOMATROPIN [Suspect]
     Dosage: 0.4 (UNIT NOT PROVIDED), 1X/DAY
     Dates: start: 20100324
  17. TESTOSTERONE [Concomitant]
     Indication: BLOOD LUTEINISING HORMONE DECREASED
     Dosage: 2 MG, DAILY
     Dates: start: 19990701, end: 20030701

REACTIONS (1)
  - POST PROCEDURAL INFECTION [None]
